FAERS Safety Report 9890870 (Version 1)
Quarter: 2014Q1

REPORT INFORMATION
  Report Type: Spontaneous
  Country: US (occurrence: US)
  Receive Date: 20140212
  Receipt Date: 20140212
  Transmission Date: 20141002
  Serious: No
  Sender: FDA-Public Use
  Company Number: US-BAYER-2014-021737

PATIENT
  Sex: Male

DRUGS (1)
  1. ALEVE CAPLET [Suspect]
     Indication: HEADACHE
     Dosage: 2 DF, UNK
     Route: 048
     Dates: start: 20140206

REACTIONS (2)
  - Erythema [Not Recovered/Not Resolved]
  - Oedema mouth [Not Recovered/Not Resolved]
